FAERS Safety Report 24041289 (Version 1)
Quarter: 2024Q3

REPORT INFORMATION
  Report Type: Spontaneous
  Country: US (occurrence: US)
  Receive Date: 20240702
  Receipt Date: 20240702
  Transmission Date: 20241016
  Serious: Yes (Hospitalization, Other)
  Sender: GLAND PHARMA
  Company Number: US-GLANDPHARMA-US-2024GLNLIT00393

PATIENT
  Age: 20 Year
  Sex: Male

DRUGS (1)
  1. DIPHENHYDRAMINE HYDROCHLORIDE [Suspect]
     Active Substance: DIPHENHYDRAMINE HYDROCHLORIDE
     Indication: Product used for unknown indication
     Dosage: 300 PILLS (25 MG EACH)
     Route: 048

REACTIONS (16)
  - Seizure [Unknown]
  - Acute respiratory distress syndrome [Unknown]
  - Hypoxia [Recovering/Resolving]
  - Multiple organ dysfunction syndrome [Unknown]
  - Hepatic failure [Unknown]
  - Renal failure [Unknown]
  - Acute right ventricular failure [Unknown]
  - Right ventricular failure [Recovering/Resolving]
  - Shock [Unknown]
  - Pulmonary haemorrhage [Unknown]
  - Cerebral haemorrhage [Unknown]
  - Mental status changes [Unknown]
  - Anaemia [Unknown]
  - Thrombocytopenia [Unknown]
  - Hypotension [Unknown]
  - Intentional overdose [Unknown]
